FAERS Safety Report 24440606 (Version 3)
Quarter: 2025Q1

REPORT INFORMATION
  Report Type: Spontaneous
  Country: US (occurrence: US)
  Receive Date: 20241016
  Receipt Date: 20250317
  Transmission Date: 20250409
  Serious: No
  Sender: JOHNSON AND JOHNSON
  Company Number: US-JNJFOC-20241009509

PATIENT
  Age: 57 Year
  Sex: Female

DRUGS (2)
  1. ELMIRON [Suspect]
     Active Substance: PENTOSAN POLYSULFATE SODIUM
     Indication: Cystitis interstitial
     Route: 048
     Dates: start: 1998
  2. LIDOCAINE [Concomitant]
     Active Substance: LIDOCAINE
     Indication: Cystitis interstitial

REACTIONS (7)
  - Cystitis interstitial [Unknown]
  - Bladder pain [Unknown]
  - Micturition disorder [Unknown]
  - Wrong technique in product usage process [Unknown]
  - Product administration error [Unknown]
  - Bladder irrigation [Unknown]
  - Therapeutic product effect decreased [Unknown]

NARRATIVE: CASE EVENT DATE: 20241002
